FAERS Safety Report 15802282 (Version 4)
Quarter: 2021Q1

REPORT INFORMATION
  Report Type: Spontaneous
  Country: US (occurrence: US)
  Receive Date: 20190109
  Receipt Date: 20210105
  Transmission Date: 20210419
  Serious: Yes (Life-Threatening, Hospitalization, Other)
  Sender: FDA-Public Use
  Company Number: US-DRREDDYS-USA/USA/19/0106675

PATIENT
  Age: 70 Year
  Sex: Male

DRUGS (7)
  1. SIMVASTATIN. [Concomitant]
     Active Substance: SIMVASTATIN
     Indication: DYSLIPIDAEMIA
     Route: 065
  2. LEVOTHYROXINE. [Concomitant]
     Active Substance: LEVOTHYROXINE
     Indication: HYPOTHYROIDISM
     Route: 065
  3. LIRAGLUTIDE [Interacting]
     Active Substance: LIRAGLUTIDE
     Indication: TYPE 2 DIABETES MELLITUS
     Dosage: DURING WEEK 1
     Route: 058
  4. METFORMIN [Suspect]
     Active Substance: METFORMIN HYDROCHLORIDE
     Indication: TYPE 2 DIABETES MELLITUS
     Dosage: IMMEDIATE?RELEASE
     Route: 065
  5. LIRAGLUTIDE [Interacting]
     Active Substance: LIRAGLUTIDE
     Route: 058
  6. LIRAGLUTIDE [Interacting]
     Active Substance: LIRAGLUTIDE
     Route: 058
  7. LISINOPRIL. [Concomitant]
     Active Substance: LISINOPRIL
     Indication: HYPERTENSION
     Route: 065

REACTIONS (6)
  - Sinus tachycardia [Recovered/Resolved]
  - Drug interaction [Recovered/Resolved]
  - Renal impairment [Recovered/Resolved]
  - Cardiac arrest [Recovered/Resolved]
  - Pulseless electrical activity [Recovered/Resolved]
  - Lactic acidosis [Recovered/Resolved]
